FAERS Safety Report 9764246 (Version 1)
Quarter: 2013Q4

REPORT INFORMATION
  Report Type: Spontaneous
  Country: US (occurrence: US)
  Receive Date: 20131216
  Receipt Date: 20131216
  Transmission Date: 20140711
  Serious: Yes (Other)
  Sender: FDA-Public Use
  Company Number: PHEH2013US025784

PATIENT
  Sex: Female

DRUGS (3)
  1. ZOMETA [Suspect]
  2. HERCEPTIN [Concomitant]
  3. AROMASIN [Concomitant]

REACTIONS (3)
  - Osteonecrosis of jaw [Unknown]
  - Tooth loss [Unknown]
  - Tooth fracture [Unknown]
